FAERS Safety Report 9756652 (Version 1)
Quarter: 2013Q4

REPORT INFORMATION
  Report Type: Report from Study
  Country: US (occurrence: US)
  Receive Date: 20131213
  Receipt Date: 20131213
  Transmission Date: 20140711
  Serious: Yes (Other)
  Sender: FDA-Public Use
  Company Number: US-PFIZER INC-2013352410

PATIENT
  Age: 2 Year
  Sex: 0

DRUGS (2)
  1. AZITHROMYCIN [Suspect]
     Indication: ANTIBIOTIC THERAPY
     Dosage: UNK
  2. WARFARIN [Interacting]
     Indication: ANTICOAGULANT THERAPY
     Dosage: UNK

REACTIONS (2)
  - Drug interaction [Unknown]
  - International normalised ratio increased [Unknown]
